FAERS Safety Report 19763458 (Version 1)
Quarter: 2021Q3

REPORT INFORMATION
  Report Type: Spontaneous
  Country: US (occurrence: US)
  Receive Date: 20210830
  Receipt Date: 20210830
  Transmission Date: 20211014
  Serious: No
  Sender: FDA-Public Use
  Company Number: US-CELGENEUS-USA-20210805953

PATIENT
  Age: 57 Year
  Sex: Female

DRUGS (3)
  1. POMALYST [Suspect]
     Active Substance: POMALIDOMIDE
     Indication: OFF LABEL USE
  2. POMALYST [Suspect]
     Active Substance: POMALIDOMIDE
     Indication: PRIMARY AMYLOIDOSIS
     Dosage: DAILY
     Route: 048
     Dates: start: 20210608
  3. POMALYST [Suspect]
     Active Substance: POMALIDOMIDE
     Indication: BREAST CANCER FEMALE

REACTIONS (2)
  - Hypertension [Unknown]
  - Peripheral swelling [Unknown]

NARRATIVE: CASE EVENT DATE: 20210817
